FAERS Safety Report 6698495-6 (Version None)
Quarter: 2010Q2

REPORT INFORMATION
  Report Type: 
  Country: None (occurrence: None)
  Receive Date: 20100426
  Receipt Date: 20100426
  Transmission Date: 20101027
  Serious: Yes (Other)
  Sender: FDA-Public Use
  Company Number: None

PATIENT
  Age: 31 Year
  Sex: Female
  Weight: 86.1834 kg

DRUGS (2)
  1. NEURONTIN [Suspect]
     Indication: BACK PAIN
     Dosage: 300 TID PO
     Route: 048
     Dates: start: 19990314, end: 20041212
  2. NEURONTIN [Suspect]
     Indication: SCIATICA
     Dosage: 300 TID PO
     Route: 048
     Dates: start: 19990314, end: 20041212

REACTIONS (10)
  - AMNESIA [None]
  - ANXIETY [None]
  - APATHY [None]
  - DEPRESSION [None]
  - MULTIPLE FRACTURES [None]
  - MUSCULAR WEAKNESS [None]
  - POST-TRAUMATIC STRESS DISORDER [None]
  - SUICIDAL BEHAVIOUR [None]
  - SUICIDAL IDEATION [None]
  - SUICIDE ATTEMPT [None]
